FAERS Safety Report 5395907-5 (Version None)
Quarter: 2007Q3

REPORT INFORMATION
  Report Type: 
  Country: None (occurrence: None)
  Receive Date: 20070724
  Receipt Date: 20070716
  Transmission Date: 20080115
  Serious: Yes (Death, Other)
  Sender: FDA-Public Use
  Company Number: AU-PFIZER INC-2007050190

PATIENT
  Sex: Male
  Weight: 72 kg

DRUGS (15)
  1. SUTENT [Suspect]
     Indication: RENAL CELL CARCINOMA STAGE UNSPECIFIED
     Route: 048
     Dates: start: 20070530, end: 20070611
  2. CEFTRIAXONE [Concomitant]
     Dosage: DAILY DOSE:1GRAM
  3. MORPHINE [Concomitant]
  4. LEVOTHYROXINE SODIUM [Concomitant]
     Dosage: DAILY DOSE:200
  5. SIMVASTATIN [Concomitant]
     Dosage: DAILY DOSE:40MG
  6. ASPIRIN W/CODEINE [Concomitant]
  7. SPIRIVA [Concomitant]
     Dosage: DAILY DOSE:18MG-FREQ:DAILY
  8. COLOXYL WITH SENNA [Concomitant]
  9. OMEPRAZOLE [Concomitant]
     Dosage: DAILY DOSE:40MG-FREQ:DAILY
  10. AVAPRO [Concomitant]
  11. CODEINE LINCTUS [Concomitant]
  12. DEXAMETHASONE 0.5MG TAB [Concomitant]
     Dosage: DAILY DOSE:8MG
  13. LACTULOSE [Concomitant]
     Dosage: DAILY DOSE:25MG
  14. AMLODIPINE [Concomitant]
     Dosage: DAILY DOSE:20MG-FREQ:DAILY
  15. ATENOLOL [Concomitant]
     Dosage: DAILY DOSE:50MG-FREQ:DAILY

REACTIONS (5)
  - ATRIAL FIBRILLATION [None]
  - DISEASE PROGRESSION [None]
  - METASTASES TO LUNG [None]
  - RENAL CELL CARCINOMA STAGE UNSPECIFIED [None]
  - TROPONIN INCREASED [None]
